FAERS Safety Report 9439136 (Version 1)
Quarter: 2013Q3

REPORT INFORMATION
  Report Type: Spontaneous
  Country: FR (occurrence: FR)
  Receive Date: 20130802
  Receipt Date: 20130802
  Transmission Date: 20140515
  Serious: Yes (Hospitalization)
  Sender: FDA-Public Use
  Company Number: FR-ABBOTT-13P-056-1126450-00

PATIENT
  Age: 28 Year
  Sex: Male

DRUGS (1)
  1. HUMIRA [Suspect]
     Indication: CROHN^S DISEASE
     Route: 058
     Dates: start: 20120709, end: 201304

REACTIONS (4)
  - Pleurisy [Recovering/Resolving]
  - Tuberculosis [Recovering/Resolving]
  - Pericarditis [Recovered/Resolved]
  - General physical health deterioration [Unknown]
